FAERS Safety Report 8199426-2 (Version None)
Quarter: 2012Q1

REPORT INFORMATION
  Report Type: 
  Country: None (occurrence: None)
  Receive Date: 20120309
  Receipt Date: 20120229
  Transmission Date: 20120608
  Serious: Yes (Other)
  Sender: FDA-Public Use
  Company Number: US-ABBOTT-08P-163-0462232-00

PATIENT
  Sex: Male

DRUGS (1)
  1. HUMIRA [Suspect]
     Indication: MATERNAL EXPOSURE TIMING UNSPECIFIED
     Route: 064

REACTIONS (9)
  - JAUNDICE [None]
  - PLACENTAL TRANSFUSION SYNDROME [None]
  - FOETAL EXPOSURE DURING PREGNANCY [None]
  - DYSPNOEA [None]
  - TEMPERATURE REGULATION DISORDER [None]
  - WHITE BLOOD CELL COUNT DECREASED [None]
  - PREMATURE BABY [None]
  - TACHYPNOEA [None]
  - BRONCHOPULMONARY DYSPLASIA [None]
